FAERS Safety Report 11722949 (Version 1)
Quarter: 2015Q4

REPORT INFORMATION
  Report Type: Spontaneous
  Country: DE (occurrence: DE)
  Receive Date: 20151111
  Receipt Date: 20151111
  Transmission Date: 20160304
  Serious: Yes (Other)
  Sender: FDA-Public Use
  Company Number: DE-BIOGENIDEC-2015BI148494

PATIENT
  Age: 0 Day
  Sex: Female
  Weight: 1 kg

DRUGS (3)
  1. CITALOPRAM 30 [Concomitant]
     Indication: FAMILIAL RISK FACTOR
     Route: 064
     Dates: start: 201102, end: 20150423
  2. TECFIDERA [Suspect]
     Active Substance: DIMETHYL FUMARATE
     Indication: MATERNAL EXPOSURE TIMING UNSPECIFIED
     Route: 064
     Dates: start: 20141201, end: 20150423
  3. QUILONUM [Concomitant]
     Active Substance: LITHIUM CARBONATE
     Indication: FAMILIAL RISK FACTOR
     Route: 064
     Dates: end: 20150423

REACTIONS (2)
  - Foetal exposure during pregnancy [Recovered/Resolved]
  - Low birth weight baby [Unknown]

NARRATIVE: CASE EVENT DATE: 20151012
